FAERS Safety Report 24253115 (Version 1)
Quarter: 2024Q3

REPORT INFORMATION
  Report Type: Spontaneous
  Country: US (occurrence: None)
  Receive Date: 20240824
  Receipt Date: 20240824
  Transmission Date: 20241016
  Serious: No
  Sender: Public
  Company Number: None

PATIENT
  Sex: Female
  Weight: 107.5 kg

DRUGS (1)
  1. FEMARA [Suspect]
     Active Substance: LETROZOLE
     Indication: Ovarian cancer
     Dates: start: 20240228, end: 20240814

REACTIONS (11)
  - Suicide attempt [None]
  - Incorrect dose administered [None]
  - Intentional self-injury [None]
  - Suicidal ideation [None]
  - Depression [None]
  - Anhedonia [None]
  - Hallucination, auditory [None]
  - Insomnia [None]
  - Nightmare [None]
  - Feeling of despair [None]
  - Feeling abnormal [None]

NARRATIVE: CASE EVENT DATE: 20240814
